FAERS Safety Report 7912138-2 (Version None)
Quarter: 2011Q4

REPORT INFORMATION
  Report Type: 
  Country: None (occurrence: None)
  Receive Date: 20111114
  Receipt Date: 20111110
  Transmission Date: 20120403
  Serious: Yes (Hospitalization, Other)
  Sender: FDA-Public Use
  Company Number: CN-PFIZER INC-2011276195

PATIENT
  Age: 75 Year
  Sex: Male

DRUGS (7)
  1. DOXOFYLLINE [Suspect]
     Indication: EMPHYSEMA
     Dosage: 0.3 G, UNK
     Dates: start: 20110101
  2. AMINO ACIDS [Suspect]
     Indication: EMPHYSEMA
     Dosage: UNK
     Dates: start: 20110101
  3. AMBROXOL HYDROCHLORIDE [Suspect]
     Indication: EMPHYSEMA
     Dosage: 30 MG, UNK
     Dates: start: 20110101
  4. FAT EMULSIONS [Suspect]
     Indication: EMPHYSEMA
     Dosage: UNK
     Dates: start: 20110101
  5. CEFOXITIN [Suspect]
     Indication: EMPHYSEMA
     Dosage: UNK
     Dates: start: 20110101
  6. LYRICA [Suspect]
     Indication: POST HERPETIC NEURALGIA
     Dosage: 75 MG BID
     Route: 048
     Dates: start: 20111001
  7. FLUCONAZOLE [Suspect]
     Indication: EMPHYSEMA
     Dosage: UNK
     Dates: start: 20110101

REACTIONS (8)
  - EMPHYSEMA [None]
  - DYSPNOEA [None]
  - HYPOPHAGIA [None]
  - INCREASED UPPER AIRWAY SECRETION [None]
  - TREMOR [None]
  - ASTHENIA [None]
  - RESPIRATORY TRACT INFECTION [None]
  - MARASMUS [None]
